FAERS Safety Report 5038383-4 (Version None)
Quarter: 2006Q2

REPORT INFORMATION
  Report Type: 
  Country: None (occurrence: None)
  Receive Date: 20060627
  Receipt Date: 20060627
  Transmission Date: 20061013
  Serious: Yes (Hospitalization)
  Sender: FDA-Public Use
  Company Number: None

PATIENT
  Age: 21 Year
  Sex: Female
  Weight: 77.1115 kg

DRUGS (1)
  1. TORADOL (KETOROAC TROMETHAMINE) [Suspect]
     Indication: PROCEDURAL PAIN
     Dosage: 30 MG X ONE DOSE IVP
     Route: 042
     Dates: start: 20051214

REACTIONS (2)
  - CONVULSION [None]
  - TONIC CLONIC MOVEMENTS [None]
